FAERS Safety Report 10405195 (Version 1)
Quarter: 2014Q3

REPORT INFORMATION
  Report Type: Spontaneous
  Country: CA (occurrence: CA)
  Receive Date: 20140825
  Receipt Date: 20140825
  Transmission Date: 20150326
  Serious: Yes (Other)
  Sender: FDA-Public Use
  Company Number: CA-AMGEN-CANSP2014063879

PATIENT
  Age: 49 Year
  Sex: Male

DRUGS (1)
  1. NEUPOGEN [Suspect]
     Active Substance: FILGRASTIM
     Indication: NEUTROPENIA
     Dosage: 1.6ML/480MCG, UNK
     Route: 065
     Dates: start: 20140820

REACTIONS (1)
  - Injection site infection [Unknown]

NARRATIVE: CASE EVENT DATE: 20140820
